FAERS Safety Report 22651417 (Version 1)
Quarter: 2023Q2

REPORT INFORMATION
  Report Type: Report from Study
  Country: US (occurrence: US)
  Receive Date: 20230628
  Receipt Date: 20230628
  Transmission Date: 20230721
  Serious: Yes (Hospitalization, Other)
  Sender: FDA-Public Use
  Company Number: US-ABBVIE-4706458

PATIENT
  Sex: Female

DRUGS (3)
  1. RINVOQ [Suspect]
     Active Substance: UPADACITINIB
     Indication: Rheumatoid arthritis
     Dosage: FORM STRENGTH: 15 MILLIGRAM; 2022 WAS THE EVENT CESSATION DATE
     Route: 048
  2. PREDNISONE [Concomitant]
     Active Substance: PREDNISONE
     Indication: Rheumatoid arthritis
  3. OXYCONTIN [Concomitant]
     Active Substance: OXYCODONE HYDROCHLORIDE
     Indication: Procedural pain

REACTIONS (6)
  - Shoulder arthroplasty [Recovered/Resolved with Sequelae]
  - Visual impairment [Unknown]
  - Arthritis [Unknown]
  - Procedural pain [Unknown]
  - Vitreous adhesions [Unknown]
  - Retinal cyst [Unknown]
